FAERS Safety Report 9727058 (Version 2)
Quarter: 2014Q2

REPORT INFORMATION
  Report Type: Spontaneous
  Country: US (occurrence: US)
  Receive Date: 20131203
  Receipt Date: 20140527
  Transmission Date: 20141212
  Serious: Yes (Hospitalization, Disabling, Other)
  Sender: FDA-Public Use
  Company Number: US-BAYER-2013-144324

PATIENT
  Age: 41 Year
  Sex: Female
  Weight: 79.82 kg

DRUGS (4)
  1. YAZ [Suspect]
     Indication: CONTRACEPTION
     Dosage: UNK
     Dates: start: 20080115, end: 20080419
  2. YAZ [Suspect]
     Indication: PREMENSTRUAL SYNDROME
  3. ROCEPHIN [Concomitant]
  4. PLAVIX [Concomitant]

REACTIONS (22)
  - Cerebral infarction [None]
  - Embolic stroke [None]
  - Encephalopathy [None]
  - Cerebral artery thrombosis [None]
  - Basal ganglia haemorrhage [None]
  - Cerebrovascular insufficiency [None]
  - Injury [None]
  - Pain [None]
  - Emotional distress [None]
  - General physical health deterioration [None]
  - Pain [None]
  - Unresponsive to stimuli [None]
  - Anxiety [None]
  - Facial asymmetry [None]
  - Hemiplegia [None]
  - Motor dysfunction [None]
  - Cognitive disorder [None]
  - Aphasia [None]
  - Facial paresis [None]
  - Disturbance in attention [None]
  - Hypoaesthesia [None]
  - Gaze palsy [None]
